FAERS Safety Report 19379165 (Version 2)
Quarter: 2021Q2

REPORT INFORMATION
  Report Type: Spontaneous
  Country: JP (occurrence: JP)
  Receive Date: 20210607
  Receipt Date: 20210628
  Transmission Date: 20210717
  Serious: Yes (Other)
  Sender: FDA-Public Use
  Company Number: NVSJ2021JP008114

PATIENT
  Sex: Female

DRUGS (3)
  1. MAYZENT [Suspect]
     Active Substance: SIPONIMOD
     Indication: SECONDARY PROGRESSIVE MULTIPLE SCLEROSIS
     Dosage: 2 MG
     Route: 048
     Dates: start: 202011, end: 20210525
  2. FAMVIR [Concomitant]
     Active Substance: FAMCICLOVIR
     Indication: PARAESTHESIA
     Dosage: UNK
     Route: 048
  3. FAMVIR [Concomitant]
     Active Substance: FAMCICLOVIR
     Indication: HERPES ZOSTER

REACTIONS (1)
  - Arrhythmia [Unknown]
